FAERS Safety Report 4475125-5 (Version None)
Quarter: 2004Q4

REPORT INFORMATION
  Report Type: 
  Country: None (occurrence: None)
  Receive Date: 20041013
  Receipt Date: 20041013
  Transmission Date: 20050328
  Serious: Yes (Death)
  Sender: FDA-Public Use
  Company Number: None

PATIENT
  Age: 51 Year
  Sex: Male
  Weight: 47.1741 kg

DRUGS (8)
  1. DAUNORUBICIN HCL [Suspect]
     Indication: ACUTE MYELOID LEUKAEMIA
     Dosage: 207 MG  DAILY   INTRAVENOU
     Route: 042
     Dates: start: 20040916, end: 20040918
  2. CYTARABINE [Suspect]
     Dosage: 230 MG   DAILY   INTRAVENOU
     Route: 042
     Dates: start: 20040916, end: 20040922
  3. AZTREONAM [Concomitant]
  4. CEFEPIME [Concomitant]
  5. VANCOMYCIN [Concomitant]
  6. CASPOFUNGIN [Concomitant]
  7. TOBRAMYCIN [Concomitant]
  8. ABLECET [Concomitant]

REACTIONS (4)
  - ACUTE FEBRILE NEUTROPHILIC DERMATOSIS [None]
  - FEBRILE NEUTROPENIA [None]
  - PNEUMONIA STAPHYLOCOCCAL [None]
  - PNEUMONITIS [None]
